FAERS Safety Report 11741199 (Version 1)
Quarter: 2015Q4

REPORT INFORMATION
  Report Type: Report from Study
  Country: US (occurrence: US)
  Receive Date: 20151116
  Receipt Date: 20151116
  Transmission Date: 20160304
  Serious: Yes (Hospitalization)
  Sender: FDA-Public Use
  Company Number: PHHO2015US018884

PATIENT
  Age: 73 Year
  Sex: Male
  Weight: 103 kg

DRUGS (16)
  1. TRAMADOL. [Suspect]
     Active Substance: TRAMADOL
     Indication: INTERVERTEBRAL DISC DEGENERATION
     Dosage: 100 MG, Q6H (PRN)
     Route: 048
     Dates: start: 20120607, end: 20151019
  2. LASIX [Suspect]
     Active Substance: FUROSEMIDE
     Indication: CARDIAC FAILURE CONGESTIVE
     Dosage: 80 MG, BID
     Route: 048
     Dates: start: 20151011, end: 20151019
  3. BLINDED RLX030 [Suspect]
     Active Substance: SERELAXIN
     Indication: CARDIAC FAILURE ACUTE
     Dosage: NO TREATMENT
     Route: 042
  4. POTASSIUM CHLORIDE. [Concomitant]
     Active Substance: POTASSIUM CHLORIDE
     Indication: ELECTROLYTE SUBSTITUTION THERAPY
     Dosage: 60 MEQ, QD
     Route: 048
     Dates: start: 20151011, end: 20151019
  5. NORCO [Suspect]
     Active Substance: ACETAMINOPHEN\HYDROCODONE BITARTRATE
     Indication: INTERVERTEBRAL DISC DEGENERATION
     Dosage: 335 MG, (10MG /325 MG) PRN
     Route: 048
     Dates: start: 20140804, end: 20151019
  6. MAGNESIUM [Concomitant]
     Active Substance: MAGNESIUM
     Indication: ELECTROLYTE SUBSTITUTION THERAPY
     Dosage: 200 MG, BID
     Route: 048
     Dates: start: 20151011, end: 20151019
  7. BLINDED NO TREATMENT RECEIVED [Suspect]
     Active Substance: INVESTIGATIONAL PRODUCT
     Indication: CARDIAC FAILURE ACUTE
     Dosage: NO TREATMENT
     Route: 042
  8. BLINDED PLACEBO [Suspect]
     Active Substance: INVESTIGATIONAL PRODUCT
     Indication: CARDIAC FAILURE ACUTE
     Dosage: NO TREATMENT
     Route: 042
  9. LISINOPRIL. [Concomitant]
     Active Substance: LISINOPRIL
     Indication: CARDIAC FAILURE CONGESTIVE
  10. INSULIN GLARGINE [Concomitant]
     Active Substance: INSULIN GLARGINE
     Indication: DIABETES MELLITUS
     Dosage: 20 U, (AT NIGHT) QD
     Route: 058
     Dates: start: 20140319, end: 20151019
  11. WARFARIN [Suspect]
     Active Substance: WARFARIN
     Indication: ATRIAL FIBRILLATION
     Dosage: 2.5 MG, QD
     Route: 048
     Dates: start: 20151011, end: 20151019
  12. LISINOPRIL. [Concomitant]
     Active Substance: LISINOPRIL
     Indication: HYPERTENSION
     Dosage: 10 MG, QD
     Route: 048
     Dates: start: 20151011, end: 20151019
  13. VALIUM [Suspect]
     Active Substance: DIAZEPAM
     Indication: ANXIETY
     Dosage: 5 MG, PRN
     Route: 048
     Dates: start: 20131203, end: 20151019
  14. VALIUM [Suspect]
     Active Substance: DIAZEPAM
     Indication: DEPRESSION
  15. SOTALOL. [Concomitant]
     Active Substance: SOTALOL
     Indication: ATRIAL FIBRILLATION
     Dosage: 80 MG, BID
     Route: 048
     Dates: start: 20151011, end: 20151019
  16. GABAPENTIN. [Concomitant]
     Active Substance: GABAPENTIN
     Indication: INTERVERTEBRAL DISC DEGENERATION
     Dosage: 300 MG, TID
     Route: 048
     Dates: start: 20140319, end: 20151019

REACTIONS (4)
  - Coagulopathy [Recovered/Resolved]
  - Atrial flutter [Recovered/Resolved]
  - Acute kidney injury [Recovered/Resolved]
  - Encephalopathy [Recovered/Resolved]

NARRATIVE: CASE EVENT DATE: 20151019
